FAERS Safety Report 7082785-1 (Version None)
Quarter: 2010Q4

REPORT INFORMATION
  Report Type: 
  Country: None (occurrence: None)
  Receive Date: 20101104
  Receipt Date: 20101025
  Transmission Date: 20110411
  Serious: Yes (Hospitalization)
  Sender: FDA-Public Use
  Company Number: US-NOVOPROD-317033

PATIENT
  Sex: Female
  Weight: 117.91 kg

DRUGS (5)
  1. NOVOLOG MIX 70/30 [Suspect]
     Indication: TYPE 1 DIABETES MELLITUS
     Dosage: UNKNOWN
     Route: 058
     Dates: start: 20080101
  2. CRESTOR [Concomitant]
     Indication: BLOOD CHOLESTEROL INCREASED
  3. PLAVIX [Concomitant]
     Indication: PRODUCT USED FOR UNKNOWN INDICATION
  4. ASPIRIN [Concomitant]
     Indication: PRODUCT USED FOR UNKNOWN INDICATION
  5. OMEPRAZOLE [Concomitant]
     Indication: GASTROOESOPHAGEAL REFLUX DISEASE

REACTIONS (2)
  - MYOCARDIAL INFARCTION [None]
  - STRESS [None]
